FAERS Safety Report 20908003 (Version 1)
Quarter: 2022Q2

REPORT INFORMATION
  Report Type: Spontaneous
  Country: PL (occurrence: PL)
  Receive Date: 20220602
  Receipt Date: 20220602
  Transmission Date: 20220720
  Serious: Yes (Other)
  Sender: FDA-Public Use
  Company Number: PL-GILEAD-2022-0574130

PATIENT
  Age: 7 Decade
  Sex: Male
  Weight: 82 kg

DRUGS (17)
  1. DESCOVY [Suspect]
     Active Substance: EMTRICITABINE\TENOFOVIR ALAFENAMIDE FUMARATE
     Indication: HIV infection
     Dosage: UNK
     Route: 065
     Dates: start: 201805, end: 201808
  2. VEMLIDY [Suspect]
     Active Substance: TENOFOVIR ALAFENAMIDE FUMARATE
     Indication: HIV infection
     Dosage: UNK
     Route: 065
     Dates: start: 201808, end: 201903
  3. DOLUTEGRAVIR [Concomitant]
     Active Substance: DOLUTEGRAVIR
     Dosage: UNK
     Dates: start: 201808, end: 201808
  4. LAMIVUDINE [Concomitant]
     Active Substance: LAMIVUDINE
     Dosage: UNK
     Dates: start: 201808, end: 202101
  5. LOPINAVIR\RITONAVIR [Concomitant]
     Active Substance: LOPINAVIR\RITONAVIR
     Dosage: UNK
     Dates: start: 201808, end: 202004
  6. METFORMIN [Concomitant]
     Active Substance: METFORMIN HYDROCHLORIDE
     Dosage: 500 MG, TID
  7. LERCANIDIPINE [Concomitant]
     Active Substance: LERCANIDIPINE
  8. CLONIDINE [Concomitant]
     Active Substance: CLONIDINE
  9. TELMISARTAN [Concomitant]
     Active Substance: TELMISARTAN
  10. INDAPAMIDE [Concomitant]
     Active Substance: INDAPAMIDE
  11. ATORVASTATIN [Concomitant]
     Active Substance: ATORVASTATIN
  12. METOPROLOL [Concomitant]
     Active Substance: METOPROLOL
  13. TORSEMIDE [Concomitant]
     Active Substance: TORSEMIDE
  14. TAMSULOZIN [Concomitant]
  15. ALLOPURINOL [Concomitant]
     Active Substance: ALLOPURINOL
  16. SULFADIAZINE [Concomitant]
     Active Substance: SULFADIAZINE
  17. PYRIMETHAMINE [Concomitant]
     Active Substance: PYRIMETHAMINE

REACTIONS (6)
  - Glomerular filtration rate decreased [Recovering/Resolving]
  - Blood glucose increased [Not Recovered/Not Resolved]
  - Blood triglycerides increased [Not Recovered/Not Resolved]
  - Weight increased [Not Recovered/Not Resolved]
  - Oedema [Unknown]
  - Off label use [Recovered/Resolved]

NARRATIVE: CASE EVENT DATE: 20180801
